FAERS Safety Report 5698776-9 (Version None)
Quarter: 2008Q2

REPORT INFORMATION
  Report Type: 
  Country: None (occurrence: None)
  Receive Date: 20080404
  Receipt Date: 20080324
  Transmission Date: 20081010
  Serious: Yes (Hospitalization)
  Sender: FDA-Public Use
  Company Number: 2008-02002

PATIENT
  Age: 17 Year
  Sex: Male

DRUGS (7)
  1. ETOPOSIDE [Suspect]
     Indication: B-CELL LYMPHOMA
     Dates: start: 20070101, end: 20070101
  2. CYCLOPHOSPHAMIDE [Suspect]
     Indication: B-CELL LYMPHOMA
     Dates: start: 20070101, end: 20070101
  3. VINCRISTINE [Suspect]
     Indication: B-CELL LYMPHOMA
     Dates: start: 20070101, end: 20070101
  4. CORTICOSTEROIDS() [Suspect]
     Indication: B-CELL LYMPHOMA
     Dates: start: 20070101, end: 20070101
  5. DOXORUBICIN HCL [Suspect]
     Indication: B-CELL LYMPHOMA
     Dates: start: 20070101, end: 20070101
  6. METHOTREXATE [Suspect]
     Indication: B-CELL LYMPHOMA
     Dates: start: 20070101, end: 20070101
  7. CYTARABINE [Suspect]
     Indication: B-CELL LYMPHOMA
     Dates: start: 20070101, end: 20070101

REACTIONS (3)
  - HEPATOSPLENIC CANDIDIASIS [None]
  - IMMUNE RECONSTITUTION SYNDROME [None]
  - NO THERAPEUTIC RESPONSE [None]
